FAERS Safety Report 5376092-2 (Version None)
Quarter: 2007Q3

REPORT INFORMATION
  Report Type: 
  Country: None (occurrence: None)
  Receive Date: 20070702
  Receipt Date: 20070628
  Transmission Date: 20080115
  Serious: Yes (Other)
  Sender: FDA-Public Use
  Company Number: A0653173A

PATIENT
  Age: 41 Year
  Sex: Female

DRUGS (5)
  1. AVANDIA [Suspect]
     Indication: TYPE 2 DIABETES MELLITUS
     Dosage: 4MG UNKNOWN
     Route: 048
     Dates: start: 20060101, end: 20060301
  2. LISINOPRIL [Concomitant]
  3. PREVACID [Concomitant]
  4. LORATADINE [Concomitant]
  5. SERTRALINE [Concomitant]

REACTIONS (5)
  - ANGINA PECTORIS [None]
  - ASTHENIA [None]
  - DIZZINESS [None]
  - HYPOAESTHESIA [None]
  - PALPITATIONS [None]
